FAERS Safety Report 20102017 (Version 2)
Quarter: 2022Q4

REPORT INFORMATION
  Report Type: Report from Study
  Country: CN (occurrence: CN)
  Receive Date: 20211123
  Receipt Date: 20221114
  Transmission Date: 20230113
  Serious: Yes (Death)
  Sender: FDA-Public Use
  Company Number: CN-PFIZER INC-202101617423

PATIENT

DRUGS (4)
  1. EPIRUBICIN HYDROCHLORIDE [Suspect]
     Active Substance: EPIRUBICIN HYDROCHLORIDE
     Indication: Hepatocellular carcinoma
     Dosage: 50 MG, CYCLIC (EVERY 6 WEEKS)
  2. LOBAPLATIN [Suspect]
     Active Substance: LOBAPLATIN
     Indication: Hepatocellular carcinoma
     Dosage: 50 MG, CYCLIC (EVERY 6 WEEKS)
  3. LIPIODOL [Suspect]
     Active Substance: ETHIODIZED OIL
     Indication: Hepatocellular carcinoma
     Dosage: UNK
  4. POLYVINYL ALCOHOL [Suspect]
     Active Substance: POLYVINYL ALCOHOL
     Indication: Hepatocellular carcinoma
     Dosage: UNK

REACTIONS (1)
  - Death [Fatal]
